FAERS Safety Report 9109469 (Version 1)
Quarter: 2013Q1

REPORT INFORMATION
  Report Type: Spontaneous
  Country: MX (occurrence: MX)
  Receive Date: 20130222
  Receipt Date: 20130222
  Transmission Date: 20140127
  Serious: Yes (Hospitalization)
  Sender: FDA-Public Use
  Company Number: PHHY2013MX017348

PATIENT
  Age: 64 Year
  Sex: Female

DRUGS (1)
  1. CO-DIOVAN [Suspect]
     Indication: HYPERTENSION
     Dosage: 1 DF, DAILY (VALS 160 MG / HYDR 25 MG)
     Route: 048
     Dates: start: 201009

REACTIONS (2)
  - Hip fracture [Recovered/Resolved]
  - Fall [Recovered/Resolved]
